FAERS Safety Report 8970959 (Version 1)
Quarter: 2012Q4

REPORT INFORMATION
  Report Type: 
  Country: US (occurrence: US)
  Receive Date: 20121218
  Receipt Date: 20121218
  Transmission Date: 20130627
  Serious: No
  Sender: FDA-Public Use
  Company Number: US-BRISTOL-MYERS SQUIBB COMPANY-17001751

PATIENT
  Age: 64 Year
  Sex: Male
  Weight: 68.03 kg

DRUGS (8)
  1. ABILIFY [Suspect]
     Indication: DEPRESSION
     Dosage: 6-8 months ago.
     Dates: start: 2012
  2. ABILIFY [Suspect]
     Indication: ANXIETY
     Dosage: 6-8 months ago.
     Dates: start: 2012
  3. CYMBALTA [Suspect]
     Indication: ANXIETY
     Dosage: 2 years ago.
  4. CYMBALTA [Suspect]
     Indication: DEPRESSION
     Dosage: 2 years ago.
  5. KLONOPIN [Suspect]
     Indication: ANXIETY
     Dosage: 2 years ago.
  6. KLONOPIN [Suspect]
     Indication: DEPRESSION
     Dosage: 2 years ago.
  7. CELEXA [Suspect]
     Indication: DEPRESSION
     Dosage: 2 years ago.
  8. CELEXA [Suspect]
     Indication: ANXIETY
     Dosage: 2 years ago.

REACTIONS (1)
  - Drug ineffective [Unknown]
